FAERS Safety Report 5850793-1 (Version None)
Quarter: 2008Q3

REPORT INFORMATION
  Report Type: 
  Country: None (occurrence: None)
  Receive Date: 20080820
  Receipt Date: 20080807
  Transmission Date: 20090109
  Serious: Yes (Life-Threatening, Other)
  Sender: FDA-Public Use
  Company Number: JP-BAYER-200811362BYL

PATIENT
  Age: 71 Year
  Sex: Female

DRUGS (5)
  1. ADALAT [Suspect]
     Indication: ESSENTIAL HYPERTENSION
     Dosage: UNIT DOSE: 20 MG
     Route: 048
     Dates: start: 20070522, end: 20071020
  2. BALOTEIN [Suspect]
     Indication: ESSENTIAL HYPERTENSION
     Route: 048
     Dates: start: 20070501, end: 20070529
  3. NORVASC [Suspect]
     Indication: ESSENTIAL HYPERTENSION
     Route: 048
     Dates: start: 20070501
  4. DIOVAN [Suspect]
     Indication: ESSENTIAL HYPERTENSION
     Route: 048
     Dates: start: 20070501
  5. LIPIDIL [Suspect]
     Route: 048
     Dates: start: 20070509, end: 20071020

REACTIONS (5)
  - DIZZINESS [None]
  - ECZEMA [None]
  - HEPATIC FUNCTION ABNORMAL [None]
  - PNEUMONIA [None]
  - PYREXIA [None]
